FAERS Safety Report 4565973-5 (Version None)
Quarter: 2005Q1

REPORT INFORMATION
  Report Type: 
  Country: None (occurrence: None)
  Receive Date: 20050128
  Receipt Date: 20050117
  Transmission Date: 20050727
  Serious: Yes (Hospitalization)
  Sender: FDA-Public Use
  Company Number: 2005013112

PATIENT
  Age: 27 Year
  Sex: Female

DRUGS (12)
  1. HALCION [Suspect]
     Dosage: 0.5 MG (0.5 MG 1 IN 1 D) ORAL
     Route: 048
  2. VEGETAMIN A (CHLORPROMAZINE HYDROCHLORIDE, PHENOBARBITAL, PROMETHAZINE [Suspect]
     Dosage: (1 IN1 D) ORAL
     Route: 048
  3. CARBAMAZEPINE [Concomitant]
  4. PAROXETINE HCL [Concomitant]
  5. BIPERIDEN HYDROCHLORIDE TAB [Concomitant]
  6. LEVOMEPROMAZINE (LEVOMEPROMAZINE) [Concomitant]
  7. QUETIAPINE FUMARATE(QUETIAPINE FUMARATE) [Concomitant]
  8. BROTIZOLAM (BROTIZOLAM) [Concomitant]
  9. FLUNITRAZEPAM (FLUNITRAZEPAM) [Concomitant]
  10. PROMETHAZINE HYDROCHLORIDE TAB [Concomitant]
  11. BROMAZEPAM (BROMAZEPAM) [Concomitant]
  12. CLOXAZOLAM (CLOXAZOLAM) [Concomitant]

REACTIONS (5)
  - BLOOD AMYLASE INCREASED [None]
  - DIALYSIS [None]
  - LOSS OF CONSCIOUSNESS [None]
  - MULTIPLE DRUG OVERDOSE [None]
  - SUICIDE ATTEMPT [None]
